FAERS Safety Report 6176271-0 (Version None)
Quarter: 2009Q2

REPORT INFORMATION
  Report Type: 
  Country: None (occurrence: None)
  Receive Date: 20090501
  Receipt Date: 20090430
  Transmission Date: 20091009
  Serious: Yes (Hospitalization)
  Sender: FDA-Public Use
  Company Number: B0571713A

PATIENT
  Sex: Female
  Weight: 68 kg

DRUGS (2)
  1. SERETIDE [Suspect]
     Indication: ASTHMA
     Dosage: 1PUFF TWICE PER DAY
     Route: 055
  2. TROMBYL [Suspect]
     Dosage: 75MG PER DAY
     Route: 048
     Dates: end: 20090406

REACTIONS (2)
  - GASTRIC DISORDER [None]
  - HAEMATEMESIS [None]
